FAERS Safety Report 8551460-6 (Version None)
Quarter: 2012Q3

REPORT INFORMATION
  Report Type: 
  Country: None (occurrence: None)
  Receive Date: 20120730
  Receipt Date: 20120726
  Transmission Date: 20120928
  Serious: Yes (Other)
  Sender: FDA-Public Use
  Company Number: PHHY2012AR065206

PATIENT

DRUGS (1)
  1. EXFORGE [Suspect]
     Indication: HYPERTENSION
     Dosage: 1 TABLET (160/5 MG), DAILY

REACTIONS (3)
  - OEDEMA PERIPHERAL [None]
  - FALL [None]
  - WRIST FRACTURE [None]
